FAERS Safety Report 4562615-X (Version None)
Quarter: 2005Q1

REPORT INFORMATION
  Report Type: 
  Country: None (occurrence: None)
  Receive Date: 20050127
  Receipt Date: 20050117
  Transmission Date: 20050727
  Serious: Yes (Disabling)
  Sender: FDA-Public Use
  Company Number: GB-JNJFOC-20050104427

PATIENT
  Age: 57 Year
  Sex: Female

DRUGS (1)
  1. ZYDOL [Suspect]
     Indication: PAIN
     Route: 049

REACTIONS (2)
  - HEADACHE [None]
  - VOMITING PROJECTILE [None]
